FAERS Safety Report 7216584-4 (Version None)
Quarter: 2011Q1

REPORT INFORMATION
  Report Type: 
  Country: None (occurrence: None)
  Receive Date: 20110110
  Receipt Date: 20110105
  Transmission Date: 20110831
  Serious: Yes (Congenital Anomaly, Other)
  Sender: FDA-Public Use
  Company Number: US-BIOGENIDEC-2010BI039478

PATIENT
  Age: 0 Day
  Sex: Female

DRUGS (1)
  1. AVONEX [Suspect]
     Indication: DRUG EXPOSURE DURING PREGNANCY
     Route: 064
     Dates: start: 20090715, end: 20091208

REACTIONS (1)
  - DEAFNESS BILATERAL [None]
